FAERS Safety Report 7592441-9 (Version None)
Quarter: 2011Q3

REPORT INFORMATION
  Report Type: 
  Country: None (occurrence: None)
  Receive Date: 20110705
  Receipt Date: 20110705
  Transmission Date: 20111222
  Serious: Yes (Life-Threatening)
  Sender: FDA-Public Use
  Company Number: None

PATIENT
  Age: 43 Year
  Sex: Male
  Weight: 70.3075 kg

DRUGS (1)
  1. TOPIMATE 674A4 VA [Suspect]
     Indication: ALCOHOLISM
     Dosage: 300MG 1 TIME A DAY PO
     Route: 048
     Dates: start: 20110613, end: 20110630

REACTIONS (22)
  - GAIT DISTURBANCE [None]
  - OEDEMA PERIPHERAL [None]
  - VISION BLURRED [None]
  - EYE PAIN [None]
  - RESPIRATORY RATE INCREASED [None]
  - FATIGUE [None]
  - DIZZINESS [None]
  - ASTHENIA [None]
  - CONFUSIONAL STATE [None]
  - MOOD SWINGS [None]
  - BODY TEMPERATURE INCREASED [None]
  - DRY MOUTH [None]
  - AMNESIA [None]
  - DYSGEUSIA [None]
  - TREMOR [None]
  - SPEECH DISORDER [None]
  - PRURITUS [None]
  - HYPERHIDROSIS [None]
  - MUSCLE SPASMS [None]
  - CONSTIPATION [None]
  - DECREASED APPETITE [None]
  - VOMITING [None]
